FAERS Safety Report 5290728-6 (Version None)
Quarter: 2007Q2

REPORT INFORMATION
  Report Type: 
  Country: None (occurrence: None)
  Receive Date: 20070405
  Receipt Date: 20070405
  Transmission Date: 20071010
  Serious: Yes (Death, Hospitalization)
  Sender: FDA-Public Use
  Company Number: None

PATIENT
  Age: 82 Year
  Sex: Female

DRUGS (16)
  1. AZATHIOPRINE [Suspect]
     Indication: RHEUMATOID ARTHRITIS
     Dosage: 50MG DAILY PO
     Route: 048
     Dates: start: 20060915, end: 20061005
  2. AZATHIOPRINE [Suspect]
     Indication: TEMPORAL ARTERITIS
     Dosage: 50MG DAILY PO
     Route: 048
     Dates: start: 20060915, end: 20061005
  3. AMIODARONE HCL [Concomitant]
  4. CALCIUM [Concomitant]
  5. ZETIA [Concomitant]
  6. FUROSEMIDE [Concomitant]
  7. INSULIN [Concomitant]
  8. LEVOTHYROXINE SODIUM [Concomitant]
  9. BEELITH [Concomitant]
  10. MECLIZINE [Concomitant]
  11. PREDNISONE TAB [Concomitant]
  12. METOPROLOL SUCCINATE [Concomitant]
  13. PROTONIX [Concomitant]
  14. PHENYTOIN [Concomitant]
  15. DIOVAN [Concomitant]
  16. AMBIEN [Concomitant]

REACTIONS (14)
  - ADVERSE DRUG REACTION [None]
  - ANAEMIA [None]
  - ASPIRATION [None]
  - ASTHENIA [None]
  - CONNECTIVE TISSUE DISORDER [None]
  - CRYPTOGENIC ORGANISING PNEUMONIA [None]
  - DYSPNOEA [None]
  - EJECTION FRACTION DECREASED [None]
  - ELECTROCARDIOGRAM CHANGE [None]
  - INFECTION [None]
  - MYOCARDIAL ISCHAEMIA [None]
  - PNEUMONIA [None]
  - RESPIRATORY FAILURE [None]
  - THROMBOCYTOPENIA [None]
